FAERS Safety Report 5313836-X (Version None)
Quarter: 2007Q2

REPORT INFORMATION
  Report Type: 
  Country: None (occurrence: None)
  Receive Date: 20070501
  Receipt Date: 20070426
  Transmission Date: 20071010
  Serious: Yes (Other)
  Sender: FDA-Public Use
  Company Number: US-GLAXOSMITHKLINE-A0649127A

PATIENT
  Sex: Male

DRUGS (5)
  1. ADVAIR DISKUS 100/50 [Suspect]
     Indication: ASTHMA
     Route: 055
     Dates: start: 20020101
  2. ALBUTEROL [Suspect]
     Indication: ASTHMA
     Route: 055
  3. SPIRIVA [Concomitant]
     Indication: ASTHMA
     Dates: start: 20040101
  4. NEBULIZER [Concomitant]
     Dates: start: 20060101
  5. PREDNISONE TAB [Concomitant]

REACTIONS (4)
  - CONDITION AGGRAVATED [None]
  - FUNGAL INFECTION [None]
  - INTENTIONAL DRUG MISUSE [None]
  - WHITE BLOOD CELL COUNT INCREASED [None]
